FAERS Safety Report 9803489 (Version 1)
Quarter: 2014Q1

REPORT INFORMATION
  Report Type: Spontaneous
  Country: GB (occurrence: GB)
  Receive Date: 20140108
  Receipt Date: 20140108
  Transmission Date: 20141002
  Serious: Yes (Hospitalization, Other)
  Sender: FDA-Public Use
  Company Number: GB-B.I. PHARMACEUTICALS,INC./RIDGEFIELD-2014-BI-00677UK

PATIENT
  Age: 75 Year
  Sex: Female

DRUGS (6)
  1. TRAJENTA [Suspect]
     Dosage: 5 MG
     Route: 048
     Dates: start: 20130614, end: 20131223
  2. AMLODIPINE [Concomitant]
  3. CANDESARTAN [Concomitant]
  4. INDAPAMIDE [Concomitant]
  5. METFORMIN [Concomitant]
  6. OMEPRAZOLE [Concomitant]

REACTIONS (2)
  - Pancreatitis acute [Not Recovered/Not Resolved]
  - Abdominal pain [Unknown]
